FAERS Safety Report 6503651-3 (Version None)
Quarter: 2009Q4

REPORT INFORMATION
  Report Type: 
  Country: None (occurrence: None)
  Receive Date: 20091217
  Receipt Date: 20091201
  Transmission Date: 20100525
  Serious: Yes (Other)
  Sender: FDA-Public Use
  Company Number: A0835317A

PATIENT
  Age: 21 Year
  Sex: Female

DRUGS (1)
  1. DUAC [Suspect]
     Dosage: 1APP PER DAY
     Route: 061
     Dates: start: 20091020, end: 20091029

REACTIONS (4)
  - ERYTHEMA [None]
  - OEDEMA [None]
  - PRURITUS [None]
  - RASH [None]
